FAERS Safety Report 11784972 (Version 1)
Quarter: 2015Q4

REPORT INFORMATION
  Report Type: Report from Study
  Country: CA (occurrence: CA)
  Receive Date: 20151130
  Receipt Date: 20151130
  Transmission Date: 20160305
  Serious: Yes (Other)
  Sender: FDA-Public Use
  Company Number: CA-AMGEN-CANSL2015125437

PATIENT
  Age: 84 Year
  Sex: Female

DRUGS (1)
  1. PROLIA [Suspect]
     Active Substance: DENOSUMAB
     Indication: OSTEOPOROSIS POSTMENOPAUSAL
     Dosage: 60 MG/ML, UNK
     Route: 058
     Dates: start: 20131105

REACTIONS (6)
  - Musculoskeletal stiffness [Unknown]
  - Blister [Unknown]
  - Arthralgia [Unknown]
  - Neck pain [Unknown]
  - Drug dose omission [Unknown]
  - Abasia [Unknown]

NARRATIVE: CASE EVENT DATE: 201511
